FAERS Safety Report 4911647-8 (Version None)
Quarter: 2006Q1

REPORT INFORMATION
  Report Type: 
  Country: None (occurrence: None)
  Receive Date: 20060213
  Receipt Date: 20060202
  Transmission Date: 20060701
  Serious: Yes (Hospitalization)
  Sender: FDA-Public Use
  Company Number: 2005146469

PATIENT
  Age: 74 Year
  Sex: Male

DRUGS (5)
  1. NIFEDIPINE [Suspect]
     Indication: ILL-DEFINED DISORDER
     Dosage: ORAL
     Route: 048
  2. METOPROLOL (METOPROLOL) [Concomitant]
  3. VASOTEC [Concomitant]
  4. VERAPAMIL [Concomitant]
  5. SYNTHROID [Concomitant]

REACTIONS (10)
  - ABDOMINAL ADHESIONS [None]
  - ANAEMIA [None]
  - ANASTOMOTIC STENOSIS [None]
  - BEZOAR [None]
  - DUODENITIS [None]
  - FIBROSIS [None]
  - HAEMORRHOIDS [None]
  - MUCOSAL ULCERATION [None]
  - SMALL INTESTINAL OBSTRUCTION [None]
  - VARICES OESOPHAGEAL [None]
